FAERS Safety Report 8828600 (Version 2)
Quarter: 2012Q4

REPORT INFORMATION
  Report Type: 
  Country: NO (occurrence: NO)
  Receive Date: 20121004
  Receipt Date: 20121023
  Transmission Date: 20130627
  Serious: Yes (Disabling, Other)
  Sender: FDA-Public Use
  Company Number: NO-TEVA-360330ISR

PATIENT
  Sex: Male

DRUGS (6)
  1. ETOPOSIDE [Suspect]
     Indication: TESTIS CANCER
  2. CISPLATIN [Suspect]
     Indication: TESTIS CANCER
  3. IFOSFAMIDE [Suspect]
     Indication: TESTIS CANCER
  4. FLUID/ELECTROLYTE REPLACEMENT THERAPY [Concomitant]
  5. ALLOPURINOL [Concomitant]
     Dosage: 600 mg, UNK
  6. G-CSF [Concomitant]

REACTIONS (12)
  - Metastasis [Recovered/Resolved]
  - Disturbance in attention [Recovered/Resolved with Sequelae]
  - Pyrexia [Recovered/Resolved with Sequelae]
  - Teratoma [Recovered/Resolved]
  - Fatigue [Recovered/Resolved with Sequelae]
  - Diarrhoea [Recovered/Resolved with Sequelae]
  - Nausea [Recovered/Resolved with Sequelae]
  - Neuropathy peripheral [Recovered/Resolved with Sequelae]
  - Tinnitus [Recovered/Resolved with Sequelae]
  - Enterocolitis [Recovered/Resolved]
  - Aplasia [Recovered/Resolved with Sequelae]
  - Vomiting [Recovered/Resolved with Sequelae]
